FAERS Safety Report 6628703-9 (Version None)
Quarter: 2010Q1

REPORT INFORMATION
  Report Type: 
  Country: None (occurrence: None)
  Receive Date: 20100311
  Receipt Date: 20100303
  Transmission Date: 20100710
  Serious: Yes (Other)
  Sender: FDA-Public Use
  Company Number: GB-BAXTER-2010BH005801

PATIENT
  Age: 4 Year
  Sex: Male

DRUGS (7)
  1. ADVATE [Suspect]
     Indication: HAEMOPHILIA
     Route: 065
     Dates: end: 20091201
  2. ADVATE [Suspect]
     Route: 065
     Dates: start: 20091201, end: 20100301
  3. ADVATE [Suspect]
     Route: 065
     Dates: start: 20091201, end: 20100301
  4. ADVATE [Suspect]
     Indication: HAEMOPHILIA
     Route: 065
     Dates: start: 20091201, end: 20100301
  5. ADVATE [Suspect]
     Indication: FACTOR VIII INHIBITION
     Route: 065
     Dates: start: 20091201, end: 20100301
  6. ADVATE [Suspect]
     Route: 065
     Dates: start: 20091201, end: 20100301
  7. ADVATE [Suspect]
     Route: 065
     Dates: start: 20091201, end: 20100301

REACTIONS (2)
  - DRUG INEFFECTIVE [None]
  - FACTOR VIII INHIBITION [None]
